FAERS Safety Report 8070217-6 (Version None)
Quarter: 2012Q1

REPORT INFORMATION
  Report Type: 
  Country: None (occurrence: None)
  Receive Date: 20120125
  Receipt Date: 20120116
  Transmission Date: 20120608
  Serious: Yes (Other)
  Sender: FDA-Public Use
  Company Number: US-ACTELION-A-US2011-49638

PATIENT

DRUGS (2)
  1. TRACLEER [Suspect]
     Indication: PULMONARY ARTERIAL HYPERTENSION
     Dosage: UNK
     Route: 048
     Dates: start: 20110510
  2. CIALIS [Concomitant]

REACTIONS (10)
  - MUSCLE SPASMS [None]
  - NEOPLASM MALIGNANT [None]
  - OEDEMA [None]
  - MUSCULOSKELETAL STIFFNESS [None]
  - BACK PAIN [None]
  - OEDEMA PERIPHERAL [None]
  - WEIGHT INCREASED [None]
  - HEADACHE [None]
  - MALAISE [None]
  - FLUID RETENTION [None]
